FAERS Safety Report 8595155-1 (Version None)
Quarter: 2012Q3

REPORT INFORMATION
  Report Type: 
  Country: None (occurrence: None)
  Receive Date: 20120815
  Receipt Date: 20120808
  Transmission Date: 20120928
  Serious: Yes (Hospitalization)
  Sender: FDA-Public Use
  Company Number: DE-SANOFI-AVENTIS-2012SA056935

PATIENT
  Age: 40 Year
  Sex: Female

DRUGS (4)
  1. DOCETAXEL [Suspect]
     Route: 041
     Dates: start: 20101109, end: 20101109
  2. CYCLOPHOSPHAMIDE [Suspect]
     Indication: BREAST CANCER
     Route: 041
     Dates: start: 20100826, end: 20100826
  3. CYCLOPHOSPHAMIDE [Suspect]
     Route: 041
     Dates: start: 20101109, end: 20101109
  4. DOCETAXEL [Suspect]
     Indication: BREAST CANCER
     Route: 041
     Dates: start: 20100826, end: 20100826

REACTIONS (1)
  - RADIUS FRACTURE [None]
